FAERS Safety Report 8958403 (Version 3)
Quarter: 2013Q1

REPORT INFORMATION
  Report Type: Spontaneous
  Country: JP (occurrence: JP)
  Receive Date: 20121210
  Receipt Date: 20130115
  Transmission Date: 20140127
  Serious: Yes (Hospitalization)
  Sender: FDA-Public Use
  Company Number: JP-GLAXOSMITHKLINE-B0850595A

PATIENT
  Age: 16 Year
  Sex: Male

DRUGS (8)
  1. LAMICTAL [Suspect]
     Indication: BIPOLAR DISORDER
     Dosage: 25MG TWICE PER DAY
     Route: 048
     Dates: start: 20120907, end: 20120917
  2. LAMICTAL [Suspect]
     Indication: BIPOLAR DISORDER
     Dosage: 25MG THREE TIMES PER DAY
     Route: 048
     Dates: start: 20120918, end: 20120920
  3. AMOXAN [Concomitant]
     Dosage: 25MG THREE TIMES PER DAY
     Route: 048
     Dates: start: 20120907, end: 20120911
  4. LEVOTOMIN [Concomitant]
     Dosage: 10MG THREE TIMES PER DAY
     Route: 048
     Dates: start: 20120907, end: 20120911
  5. WINTERMIN [Concomitant]
     Dosage: 100MG PER DAY
     Route: 048
     Dates: start: 20120907, end: 20120911
  6. VEGETAMIN-B [Concomitant]
     Dosage: 2IUAX PER DAY
     Route: 048
     Dates: start: 20120907, end: 20120921
  7. GOODMIN [Concomitant]
     Dosage: .5MG PER DAY
     Route: 048
     Dates: start: 20120907, end: 20120921
  8. MYSLEE [Concomitant]
     Route: 048

REACTIONS (27)
  - Drug reaction with eosinophilia and systemic symptoms [Unknown]
  - Toxic epidermal necrolysis [Unknown]
  - Histiocytosis haematophagic [Unknown]
  - Pyrexia [Recovering/Resolving]
  - Nasopharyngitis [Unknown]
  - Rash generalised [Unknown]
  - Skin erosion [Recovering/Resolving]
  - Generalised erythema [Recovering/Resolving]
  - Granulocyte count decreased [Unknown]
  - Aspartate aminotransferase increased [Unknown]
  - Alanine aminotransferase increased [Unknown]
  - Blood lactate dehydrogenase increased [Unknown]
  - Gamma-glutamyltransferase increased [Unknown]
  - Blood bilirubin increased [Unknown]
  - Protein total decreased [Unknown]
  - Blood albumin decreased [Unknown]
  - C-reactive protein increased [Unknown]
  - White blood cell count decreased [Unknown]
  - Ocular hyperaemia [Unknown]
  - Erythema of eyelid [Unknown]
  - Eye discharge [Unknown]
  - Oral mucosa erosion [Unknown]
  - Lip erosion [Unknown]
  - Scab [Unknown]
  - Scrotal ulcer [Unknown]
  - Rash macular [Unknown]
  - Rash pustular [Unknown]
